FAERS Safety Report 15200747 (Version 1)
Quarter: 2018Q3

REPORT INFORMATION
  Report Type: Spontaneous
  Country: US (occurrence: US)
  Receive Date: 20180726
  Receipt Date: 20180726
  Transmission Date: 20181010
  Serious: Yes (Other)
  Sender: FDA-Public Use
  Company Number: US-SA-2018SA198156

PATIENT
  Sex: Female

DRUGS (1)
  1. AUBAGIO [Suspect]
     Active Substance: TERIFLUNOMIDE

REACTIONS (11)
  - Pain [Unknown]
  - Headache [Unknown]
  - Fatigue [Unknown]
  - Multiple sclerosis relapse [Unknown]
  - Disease progression [Unknown]
  - Insomnia [Unknown]
  - Malaise [Unknown]
  - Peroneal nerve palsy [Unknown]
  - Sleep disorder [Unknown]
  - Gait disturbance [Unknown]
  - Impaired driving ability [Unknown]
